FAERS Safety Report 9300867 (Version 1)
Quarter: 2013Q2

REPORT INFORMATION
  Report Type: Spontaneous
  Country: US (occurrence: None)
  Receive Date: 20130520
  Receipt Date: 20130520
  Transmission Date: 20140414
  Serious: Yes (Hospitalization)
  Sender: FDA-Public Use
  Company Number: None

PATIENT
  Age: 24 Year
  Sex: Female
  Weight: 61.24 kg

DRUGS (1)
  1. MIRENA IUD [Suspect]

REACTIONS (16)
  - Acne [None]
  - Muscle spasms [None]
  - Mood swings [None]
  - Convulsion [None]
  - Anger [None]
  - Depression [None]
  - Libido decreased [None]
  - Weight increased [None]
  - Migraine [None]
  - Abdominal distension [None]
  - Pregnancy [None]
  - Fungal infection [None]
  - Uterine infection [None]
  - Pain [None]
  - Discomfort [None]
  - Coital bleeding [None]
